FAERS Safety Report 5450968-X (Version None)
Quarter: 2007Q3

REPORT INFORMATION
  Report Type: 
  Country: None (occurrence: None)
  Receive Date: 20070911
  Receipt Date: 20070705
  Transmission Date: 20080115
  Serious: Yes (Disabling)
  Sender: FDA-Public Use
  Company Number: CH-GUERBET-20070009

PATIENT
  Age: 67 Year
  Sex: Female

DRUGS (9)
  1. DOTAREM: / GADOTERIC ACID [Suspect]
     Indication: ANGIOGRAM
     Dosage: 20 ML, MILLILITER(S), 1; 20, ML MILLILITER(S), 1
     Route: 042
     Dates: start: 20040128, end: 20040128
  2. DOTAREM: / GADOTERIC ACID [Suspect]
     Indication: NUCLEAR MAGNETIC RESONANCE IMAGING
     Dosage: 20 ML, MILLILITER(S), 1; 20, ML MILLILITER(S), 1
     Route: 042
     Dates: start: 20040128, end: 20040128
  3. DOTAREM: / GADOTERIC ACID [Suspect]
     Indication: ANGIOGRAM
     Dosage: 20 ML, MILLILITER(S), 1; 20, ML MILLILITER(S), 1
     Route: 042
     Dates: start: 20040908, end: 20040908
  4. DOTAREM: / GADOTERIC ACID [Suspect]
     Indication: NUCLEAR MAGNETIC RESONANCE IMAGING
     Dosage: 20 ML, MILLILITER(S), 1; 20, ML MILLILITER(S), 1
     Route: 042
     Dates: start: 20040908, end: 20040908
  5. DOTAREM: / GADOTERIC ACID [Suspect]
     Indication: ANGIOGRAM
     Dosage: 20 ML, MILLILITER(S), 1; 20, ML MILLILITER(S), 1
     Route: 042
     Dates: start: 20050607, end: 20050607
  6. DOTAREM: / GADOTERIC ACID [Suspect]
     Indication: NUCLEAR MAGNETIC RESONANCE IMAGING
     Dosage: 20 ML, MILLILITER(S), 1; 20, ML MILLILITER(S), 1
     Route: 042
     Dates: start: 20050607, end: 20050607
  7. GADOVIST / GADOBUTROL [Concomitant]
  8. IOPAMIDOL [Concomitant]
  9. MAGNEVIST / GADOPENTETIC ACID [Concomitant]

REACTIONS (5)
  - COLITIS [None]
  - FIBROSIS [None]
  - NECROSIS [None]
  - NEPHROGENIC SYSTEMIC FIBROSIS [None]
  - VENOUS STASIS [None]
